FAERS Safety Report 5565320-6 (Version None)
Quarter: 2007Q4

REPORT INFORMATION
  Report Type: 
  Country: None (occurrence: None)
  Receive Date: 20071218
  Receipt Date: 20030514
  Transmission Date: 20080405
  Serious: Yes (Death, Other)
  Sender: FDA-Public Use
  Company Number: GB-ROCHE-337840

PATIENT
  Age: 49 Year
  Sex: Male

DRUGS (7)
  1. TRETINOIN [Suspect]
     Indication: ACUTE PROMYELOCYTIC LEUKAEMIA
     Route: 065
  2. ETOPOSIDE [Suspect]
     Indication: ACUTE PROMYELOCYTIC LEUKAEMIA
     Dosage: INTERMITTENT THERAPY GIVEN ON DAYS 1 - 5.
     Route: 065
  3. ETOPOSIDE [Suspect]
     Dosage: GIVEN ON DAYS 1 - 3.
     Route: 065
     Dates: end: 19961101
  4. IDARUBICIN HCL [Suspect]
     Indication: ACUTE PROMYELOCYTIC LEUKAEMIA
     Dosage: GIVEN ON DAYS 1 AND 2.
     Route: 065
     Dates: end: 19961101
  5. MITOXANTRONE [Concomitant]
     Indication: ACUTE PROMYELOCYTIC LEUKAEMIA
     Dosage: INTERMITTENT THERAPY GIVEN ON DAYS 1, 3 AND 5 OR DAYS 1-5.
     Dates: end: 19961101
  6. CYTOSINE ARABINOSIDE [Concomitant]
     Indication: ACUTE PROMYELOCYTIC LEUKAEMIA
     Dosage: INTERMITTENT THERAPY GIVEN ON DAYS 1 - 10 OR DAYS 1 - 5 OR DAYS 1-3.
     Dates: end: 19961101
  7. AMSACRINE [Concomitant]
     Indication: ACUTE PROMYELOCYTIC LEUKAEMIA
     Dosage: INTERMITTENT THERAPY GIVEN ON DAY 1 - 5.
     Dates: end: 19961101

REACTIONS (2)
  - ACUTE MYELOID LEUKAEMIA [None]
  - VENOUS INJURY [None]
